FAERS Safety Report 5734942-1 (Version None)
Quarter: 2008Q2

REPORT INFORMATION
  Report Type: 
  Country: None (occurrence: None)
  Receive Date: 20080508
  Receipt Date: 20080508
  Transmission Date: 20081010
  Serious: Yes (Disabling)
  Sender: FDA-Public Use
  Company Number: None

PATIENT
  Age: 30 Year
  Sex: Male
  Weight: 97.5234 kg

DRUGS (2)
  1. CREST PRO HEALTH RINSE [Suspect]
     Dosage: RINSE WITH CAP FULL DAILY DENTAL
     Route: 004
     Dates: start: 20050101, end: 20080507
  2. CREST W/ FLUORIDE [Suspect]
     Dosage: BRUSH TEETH 3 TIMES A DAY DAILY DENTAL
     Route: 004
     Dates: start: 20060101, end: 20080507

REACTIONS (1)
  - TOOTH DISCOLOURATION [None]
